FAERS Safety Report 5154964-1 (Version None)
Quarter: 2006Q4

REPORT INFORMATION
  Report Type: 
  Country: None (occurrence: None)
  Receive Date: 20061121
  Receipt Date: 20060926
  Transmission Date: 20070319
  Serious: Yes (Hospitalization, Other)
  Sender: FDA-Public Use
  Company Number: US-ELI_LILLY_AND_COMPANY-US200609006543

PATIENT
  Age: 64 Year
  Sex: Female
  Weight: 122.45 kg

DRUGS (4)
  1. HUMALOG MIX 75/25 [Suspect]
     Indication: DIABETES MELLITUS
     Dosage: UNK UNK, 2/D
     Dates: start: 19960101
  2. HUMALOG MIX 75/25 [Suspect]
     Dosage: 38 U, EACH EVENING
     Dates: start: 19960101
  3. ZAROXOLYN [Concomitant]
     Indication: FLUID RETENTION
     Dosage: UNK, UNKNOWN
  4. VITAMINS [Concomitant]
     Dosage: UNK, UNKNOWN

REACTIONS (8)
  - ALOPECIA [None]
  - CARDIAC FAILURE CONGESTIVE [None]
  - ERYTHEMA [None]
  - INFLUENZA [None]
  - MALAISE [None]
  - OEDEMA PERIPHERAL [None]
  - OVARIAN CANCER [None]
  - PERIPHERAL VASCULAR DISORDER [None]
